FAERS Safety Report 6024909-0 (Version None)
Quarter: 2008Q4

REPORT INFORMATION
  Report Type: 
  Country: None (occurrence: None)
  Receive Date: 20081231
  Receipt Date: 20081219
  Transmission Date: 20090506
  Serious: Yes (Death, Hospitalization)
  Sender: FDA-Public Use
  Company Number: CO-PFIZER INC-2008158424

PATIENT

DRUGS (5)
  1. LIPITOR [Suspect]
     Dosage: 10 MG, 1X/DAY
     Route: 048
     Dates: start: 20040819
  2. OLMETEC [Suspect]
     Indication: HYPERTENSION
     Dosage: 20MG/12.5MG ONCE DAILY
     Route: 048
     Dates: start: 20040819
  3. GLIBENCLAMIDE [Concomitant]
     Dosage: 5MG
  4. ENALAPRIL [Concomitant]
     Dosage: 20MG
  5. DIGOXIN [Concomitant]
     Dosage: 20MG

REACTIONS (2)
  - DEATH [None]
  - SKIN ULCER [None]
